FAERS Safety Report 15889611 (Version 3)
Quarter: 2019Q2

REPORT INFORMATION
  Report Type: Report from Study
  Country: FR (occurrence: FR)
  Receive Date: 20190130
  Receipt Date: 20190606
  Transmission Date: 20190711
  Serious: Yes (Hospitalization)
  Sender: FDA-Public Use
  Company Number: FR-BAYER-2019-019092

PATIENT
  Age: 65 Year
  Sex: Female
  Weight: 62 kg

DRUGS (13)
  1. ALPRAZOLAM. [Concomitant]
     Active Substance: ALPRAZOLAM
     Indication: ANXIETY
     Dosage: 0.25 MG
     Route: 048
     Dates: start: 20190116
  2. MACROGOL [Concomitant]
     Active Substance: POLYETHYLENE GLYCOLS
     Indication: CONSTIPATION
     Dosage: UNK
     Route: 048
     Dates: start: 20190111
  3. PARACETAMOL [Concomitant]
     Active Substance: ACETAMINOPHEN
     Indication: ABDOMINAL PAIN
     Dosage: 1 G
     Route: 048
     Dates: start: 20190116
  4. BETAMETHASONE. [Concomitant]
     Active Substance: BETAMETHASONE
     Indication: SKIN LESION
     Dosage: UNK
     Route: 061
     Dates: start: 20190119
  5. OXYNORMORO [Concomitant]
     Active Substance: OXYCODONE HYDROCHLORIDE
     Indication: ABDOMINAL PAIN
     Dosage: 10 MG
     Route: 048
     Dates: start: 201812
  6. ZOPHREN [ONDANSETRON HYDROCHLORIDE] [Concomitant]
     Active Substance: ONDANSETRON
     Indication: PREMEDICATION
     Dosage: UNK
     Route: 048
     Dates: start: 20190108
  7. GEMCITABINE [Suspect]
     Active Substance: GEMCITABINE\GEMCITABINE HYDROCHLORIDE
     Indication: BILE DUCT CANCER
     Dosage: 900 MG/M2
     Route: 042
     Dates: start: 20190108, end: 20190108
  8. OXALIPLATINE [Suspect]
     Active Substance: OXALIPLATIN
     Indication: BILE DUCT CANCER
     Dosage: 80 MG/M2
     Route: 042
     Dates: start: 20190108, end: 20190108
  9. VALSARTAN. [Concomitant]
     Active Substance: VALSARTAN
     Indication: HYPERTENSION
     Dosage: 80 MG
     Route: 048
     Dates: start: 2001
  10. DUROGESIC [Concomitant]
     Active Substance: FENTANYL
     Indication: ABDOMINAL PAIN
     Dosage: 12 ?G
     Route: 062
     Dates: start: 201812, end: 20190110
  11. REGORAFENIB. [Suspect]
     Active Substance: REGORAFENIB
     Indication: BILE DUCT CANCER
     Dosage: 160 MG
     Route: 048
     Dates: start: 20190108, end: 20190118
  12. DUROGESIC [Concomitant]
     Active Substance: FENTANYL
     Indication: ABDOMINAL PAIN
     Dosage: 25 ?G
     Route: 062
     Dates: start: 20190111
  13. EMEND [Concomitant]
     Active Substance: APREPITANT
     Indication: PREMEDICATION
     Dosage: UNK
     Route: 048
     Dates: start: 20190108

REACTIONS (1)
  - C-reactive protein increased [Recovered/Resolved]

NARRATIVE: CASE EVENT DATE: 20190122
